FAERS Safety Report 25163218 (Version 2)
Quarter: 2025Q2

REPORT INFORMATION
  Report Type: Spontaneous
  Country: AT (occurrence: None)
  Receive Date: 20250404
  Receipt Date: 20250415
  Transmission Date: 20250716
  Serious: Yes (Other)
  Sender: INCYTE
  Company Number: AT-002147023-NVSC2025AT053310

PATIENT
  Age: 67 Year

DRUGS (2)
  1. RUXOLITINIB [Suspect]
     Active Substance: RUXOLITINIB
     Indication: Product used for unknown indication
     Dosage: 10 MG, BID
     Route: 065
  2. RUXOLITINIB [Suspect]
     Active Substance: RUXOLITINIB
     Dosage: 5 MG, BID
     Route: 065

REACTIONS (5)
  - Transfusion related complication [Unknown]
  - Cytopenia [Unknown]
  - Iron overload [Unknown]
  - Anaemia [Not Recovered/Not Resolved]
  - Drug ineffective [Unknown]
